FAERS Safety Report 17872265 (Version 6)
Quarter: 2024Q4

REPORT INFORMATION
  Report Type: Spontaneous
  Country: US (occurrence: US)
  Receive Date: 20200608
  Receipt Date: 20241028
  Transmission Date: 20250115
  Serious: Yes (Other)
  Sender: PFIZER
  Company Number: US-PFIZER INC-2019316074

PATIENT
  Age: 52 Year
  Sex: Female
  Weight: 55.34 kg

DRUGS (16)
  1. PREMARIN [Suspect]
     Active Substance: ESTROGENS, CONJUGATED
     Indication: Rectocele
     Dosage: ONE APPLICATOR FULL THREE TIMES A WEEK
     Route: 067
     Dates: start: 2005
  2. PREMARIN [Suspect]
     Active Substance: ESTROGENS, CONJUGATED
     Indication: Hysterectomy
     Dosage: 0.5 G, 2X/WEEKLY
     Route: 067
  3. PREMARIN [Suspect]
     Active Substance: ESTROGENS, CONJUGATED
     Indication: Vaginal pessary insertion
     Dosage: UNK, 3 TIMES A WEEK
     Route: 067
  4. PREMARIN [Suspect]
     Active Substance: ESTROGENS, CONJUGATED
     Indication: Blood oestrogen decreased
     Dosage: 0.625 MG, UNK
  5. PREMARIN [Suspect]
     Active Substance: ESTROGENS, CONJUGATED
     Dosage: 0.5 MG, THREE TIMES WEEKLY
     Route: 067
     Dates: start: 2007, end: 20200226
  6. PREMARIN [Suspect]
     Active Substance: ESTROGENS, CONJUGATED
     Dosage: 0.5 MG, EVERY OTHER DAY
     Route: 067
     Dates: start: 20200108, end: 20200124
  7. PREMARIN [Suspect]
     Active Substance: ESTROGENS, CONJUGATED
     Dosage: ADMINISTER WITH APPLICATOR THREE TIMES A WEEK ON MONDAYS, WEDNESDAYS AND FRIDAYS.
     Route: 067
  8. PREMARIN [Suspect]
     Active Substance: ESTROGENS, CONJUGATED
     Dosage: EVERY THREE DAYS AT NIGHT TIME
  9. RIZATRIPTAN [Concomitant]
     Active Substance: RIZATRIPTAN
     Indication: Migraine
     Dosage: 10 MG
  10. CLARITIN-D NOS [Concomitant]
     Active Substance: LORATADINE\PSEUDOEPHEDRINE SULFATE
     Dosage: UNK
  11. DIETARY SUPPLEMENT [Concomitant]
     Active Substance: DIETARY SUPPLEMENT
     Dosage: UNK
  12. LYSINE [Concomitant]
     Active Substance: LYSINE
     Dosage: UNK
  13. ZINC [Concomitant]
     Active Substance: ZINC
     Dosage: UNK
  14. VITAMIN D NOS [Concomitant]
     Active Substance: CHOLECALCIFEROL\ERGOCALCIFEROL
     Dosage: 125 MG
  15. METAMUCIL THERAPY FOR REGULARITY [Concomitant]
     Active Substance: PSYLLIUM HUSK
     Indication: Bowel movement irregularity
     Dosage: ONE TIME IN THE MORNING
  16. IBUPROFEN [Concomitant]
     Active Substance: IBUPROFEN
     Indication: Pain
     Dosage: UNK

REACTIONS (11)
  - Haemorrhoids [Unknown]
  - Ulcer [Unknown]
  - Dehydration [Unknown]
  - Gastrointestinal disorder [Unknown]
  - Illness [Unknown]
  - Eating disorder [Unknown]
  - Scar [Unknown]
  - Abdominal pain upper [Unknown]
  - Diarrhoea [Unknown]
  - Off label use [Unknown]
  - Product storage error [Unknown]

NARRATIVE: CASE EVENT DATE: 20050101
